FAERS Safety Report 14652872 (Version 2)
Quarter: 2018Q2

REPORT INFORMATION
  Report Type: Spontaneous
  Country: US (occurrence: US)
  Receive Date: 20180319
  Receipt Date: 20180503
  Transmission Date: 20180711
  Serious: Yes (Hospitalization)
  Sender: FDA-Public Use
  Company Number: US-SUN PHARMACEUTICAL INDUSTRIES LTD-2018US-166799

PATIENT
  Age: 63 Year
  Sex: Male

DRUGS (1)
  1. DICLOFENAC [Suspect]
     Active Substance: DICLOFENAC
     Indication: OSTEOARTHRITIS
     Dosage: CHRONIC DICLOFENAC
     Route: 065

REACTIONS (6)
  - Microcytic anaemia [None]
  - Gastric ulcer [None]
  - Large intestinal ulcer [None]
  - Diverticulum intestinal [None]
  - Large intestinal stenosis [Recovered/Resolved]
  - Intentional product use issue [None]
